FAERS Safety Report 6230223-0 (Version None)
Quarter: 2009Q2

REPORT INFORMATION
  Report Type: 
  Country: None (occurrence: None)
  Receive Date: 20090615
  Receipt Date: 20090602
  Transmission Date: 20091009
  Serious: Yes (Hospitalization)
  Sender: FDA-Public Use
  Company Number: US-MYLANLABS-2009S1009719

PATIENT
  Age: 55 Year
  Sex: Male

DRUGS (3)
  1. TRAMADOL HCL [Suspect]
     Indication: ARTHRALGIA
  2. ZOLOFT [Suspect]
     Indication: MAJOR DEPRESSION
  3. TRAZODONE HCL [Suspect]
     Indication: MAJOR DEPRESSION

REACTIONS (2)
  - DRUG ABUSE [None]
  - SEROTONIN SYNDROME [None]
